FAERS Safety Report 6585978-2 (Version None)
Quarter: 2010Q1

REPORT INFORMATION
  Report Type: 
  Country: None (occurrence: None)
  Receive Date: 20100217
  Receipt Date: 20100215
  Transmission Date: 20100710
  Serious: Yes (Life-Threatening, Hospitalization)
  Sender: FDA-Public Use
  Company Number: DE-SANOFI-AVENTIS-F04200900126

PATIENT
  Age: 75 Year
  Sex: Male

DRUGS (4)
  1. OXALIPLATIN [Suspect]
     Route: 041
     Dates: start: 20091013, end: 20091013
  2. DOCETAXEL [Suspect]
     Route: 041
     Dates: start: 20091013, end: 20091013
  3. FLUOROURACIL [Suspect]
     Route: 041
     Dates: start: 20091013, end: 20091013
  4. FOLINIC ACID [Suspect]
     Route: 041
     Dates: start: 20091013, end: 20091013

REACTIONS (1)
  - GASTRIC PERFORATION [None]
